FAERS Safety Report 13745534 (Version 2)
Quarter: 2017Q3

REPORT INFORMATION
  Report Type: Report from Study
  Country: CO (occurrence: CO)
  Receive Date: 20170712
  Receipt Date: 20170724
  Transmission Date: 20171127
  Serious: Yes (Death, Hospitalization)
  Sender: FDA-Public Use
  Company Number: PHHY2017CO101875

PATIENT
  Age: 55 Year
  Sex: Male
  Weight: 72 kg

DRUGS (1)
  1. TASIGNA [Suspect]
     Active Substance: NILOTINIB
     Indication: CHRONIC MYELOID LEUKAEMIA
     Dosage: 200 MG, QID
     Route: 048
     Dates: start: 20160829

REACTIONS (3)
  - Death [Fatal]
  - Splenic neoplasm malignancy unspecified [Unknown]
  - Hiccups [Unknown]

NARRATIVE: CASE EVENT DATE: 20170707
